FAERS Safety Report 7077003 (Version 2)
Quarter: 2014Q3

REPORT INFORMATION
  Report Type: Spontaneous
  Country: US (occurrence: None)
  Receive Date: 20090803
  Receipt Date: 20140703
  Transmission Date: 20150326
  Serious: Yes (Other)
  Sender: FDA-Public Use
  Company Number: 2009S1005958

PATIENT
  Age: 73 Year
  Sex: Male

DRUGS (3)
  1. IBUPROFEN (IBUPROFEN) [Concomitant]
     Active Substance: IBUPROFEN
  2. PHOSPHO-SODA [Suspect]
     Active Substance: SODIUM PHOSPHATE, DIBASIC\SODIUM PHOSPHATE, MONOBASIC
     Indication: COLONOSCOPY
     Dates: start: 20071001
  3. LIPITOR [Concomitant]
     Active Substance: ATORVASTATIN CALCIUM

REACTIONS (19)
  - Nephrogenic anaemia [None]
  - Early satiety [None]
  - Fatigue [None]
  - Ageusia [None]
  - Polyuria [None]
  - Nocturia [None]
  - Abdominal pain upper [None]
  - Nausea [None]
  - Malaise [None]
  - Peripheral coldness [None]
  - Hyperparathyroidism secondary [None]
  - Weight decreased [None]
  - Tremor [None]
  - Renal failure chronic [None]
  - Diarrhoea [None]
  - Hyperglycaemia [None]
  - Polydipsia [None]
  - Abdominal distension [None]
  - Dizziness [None]

NARRATIVE: CASE EVENT DATE: 20071217
